FAERS Safety Report 4378217-4 (Version None)
Quarter: 2004Q2

REPORT INFORMATION
  Report Type: 
  Country: None (occurrence: None)
  Receive Date: 20040609
  Receipt Date: 20040521
  Transmission Date: 20050107
  Serious: Yes (Disabling)
  Sender: FDA-Public Use
  Company Number: JP_040403043

PATIENT
  Age: 55 Year
  Sex: Male
  Weight: 70 kg

DRUGS (3)
  1. VINBLASTINE SULFATE [Suspect]
     Indication: TESTICULAR NEOPLASM
     Dosage: 15 MG OTHER
     Dates: start: 19980127, end: 19980317
  2. CISPLATIN [Concomitant]
  3. BLEO (BLEOMYCIN HYDROCHLORIDE) [Concomitant]

REACTIONS (7)
  - GASTRITIS [None]
  - METASTASES TO LYMPH NODES [None]
  - NEUROPATHY PERIPHERAL [None]
  - RETINAL PIGMENT EPITHELIOPATHY [None]
  - VISUAL ACUITY REDUCED [None]
  - VISUAL FIELD DEFECT [None]
  - WHITE BLOOD CELL COUNT DECREASED [None]
